FAERS Safety Report 25475201 (Version 1)
Quarter: 2025Q2

REPORT INFORMATION
  Report Type: Spontaneous
  Country: CA (occurrence: CA)
  Receive Date: 20250624
  Receipt Date: 20250624
  Transmission Date: 20250717
  Serious: Yes (Hospitalization)
  Sender: GALPHARM INTERNATIONAL
  Company Number: CA-PERRIGO-25CA007630

PATIENT
  Age: 6 Year
  Sex: Female
  Weight: 24 kg

DRUGS (3)
  1. IBUPROFEN [Suspect]
     Active Substance: IBUPROFEN
     Indication: Pyrexia
     Route: 048
  2. IBUPROFEN [Suspect]
     Active Substance: IBUPROFEN
     Indication: Pain
  3. AMOXICILLIN [Concomitant]
     Active Substance: AMOXICILLIN
     Indication: Product used for unknown indication
     Route: 065

REACTIONS (2)
  - Duodenal ulcer [Recovered/Resolved]
  - Upper gastrointestinal haemorrhage [Recovered/Resolved]
